FAERS Safety Report 15256857 (Version 1)
Quarter: 2018Q3

REPORT INFORMATION
  Report Type: Report from Study
  Country: US (occurrence: US)
  Receive Date: 20180808
  Receipt Date: 20180808
  Transmission Date: 20181010
  Serious: Yes (Hospitalization)
  Sender: FDA-Public Use
  Company Number: US-ACTELION-A-US2018-171711

PATIENT
  Age: 53 Year
  Sex: Female
  Weight: 88.89 kg

DRUGS (2)
  1. UPTRAVI [Suspect]
     Active Substance: SELEXIPAG
     Indication: PULMONARY ARTERIAL HYPERTENSION
     Dosage: 600 MCG, BID
     Route: 048
  2. UPTRAVI [Suspect]
     Active Substance: SELEXIPAG
     Dosage: 1000 MCG, BID
     Route: 048
     Dates: end: 20180715

REACTIONS (4)
  - Lung transplant [Unknown]
  - Joint swelling [Recovering/Resolving]
  - Pain in jaw [Recovering/Resolving]
  - Headache [Recovering/Resolving]
